FAERS Safety Report 6247216-X (Version None)
Quarter: 2009Q2

REPORT INFORMATION
  Report Type: 
  Country: None (occurrence: None)
  Receive Date: 20090626
  Receipt Date: 20090612
  Transmission Date: 20091009
  Serious: Yes (Hospitalization)
  Sender: FDA-Public Use
  Company Number: FR-PFIZER INC-2009213762

PATIENT

DRUGS (1)
  1. GENOTONORM [Suspect]
     Dosage: UNK

REACTIONS (1)
  - SYNOVIAL CYST [None]
